FAERS Safety Report 18916771 (Version 1)
Quarter: 2021Q1

REPORT INFORMATION
  Report Type: Spontaneous
  Country: IT (occurrence: IT)
  Receive Date: 20210219
  Receipt Date: 20210219
  Transmission Date: 20210420
  Serious: Yes (Other)
  Sender: FDA-Public Use
  Company Number: IT-PFIZER INC-2021129222

PATIENT
  Age: 19 Year
  Sex: Male

DRUGS (1)
  1. TAVOR (LORAZEPAM) [Suspect]
     Active Substance: LORAZEPAM
     Indication: SUBSTANCE USE DISORDER
     Dosage: 8 DF FREQ:{TOTAL};
     Route: 048
     Dates: start: 20190913, end: 20190913

REACTIONS (8)
  - Overdose [Recovering/Resolving]
  - Ecchymosis [Recovering/Resolving]
  - Rhinalgia [Recovering/Resolving]
  - Drug abuse [Recovering/Resolving]
  - Depressed level of consciousness [Recovering/Resolving]
  - Periorbital pain [Recovering/Resolving]
  - Self-injurious ideation [Recovering/Resolving]
  - Tenderness [Recovering/Resolving]

NARRATIVE: CASE EVENT DATE: 20190914
